FAERS Safety Report 15476640 (Version 1)
Quarter: 2018Q4

REPORT INFORMATION
  Report Type: Spontaneous
  Country: US (occurrence: US)
  Receive Date: 20181001
  Receipt Date: 20181001
  Transmission Date: 20190205
  Serious: No
  Sender: FDA-Public Use
  Company Number: None

PATIENT
  Age: 55 Year
  Sex: Male

DRUGS (1)
  1. REPATHA [Suspect]
     Active Substance: EVOLOCUMAB
     Dates: start: 201802

REACTIONS (3)
  - Injection site pain [None]
  - Skin hyperpigmentation [None]
  - Musculoskeletal pain [None]

NARRATIVE: CASE EVENT DATE: 20180928
